FAERS Safety Report 8223208-6 (Version None)
Quarter: 2012Q1

REPORT INFORMATION
  Report Type: 
  Country: None (occurrence: None)
  Receive Date: 20120321
  Receipt Date: 20120308
  Transmission Date: 20120608
  Serious: Yes (Hospitalization)
  Sender: FDA-Public Use
  Company Number: JP-ROCHE-GNE295830

PATIENT
  Age: 67 Year
  Sex: Female

DRUGS (7)
  1. OMALIZUMAB [Suspect]
     Indication: ASTHMA
     Dosage: 150 MG, 1/MONTH
     Route: 058
  2. SEREVENT [Concomitant]
     Dates: start: 20090505
  3. SINGULAIR [Concomitant]
     Dates: start: 20090505
  4. SLO-BID [Concomitant]
     Dates: start: 20090505
  5. PREDNISOLONE [Concomitant]
     Dates: start: 20090505
  6. OMALIZUMAB [Suspect]
     Dosage: 150 MG, 1/MONTH
     Route: 058
     Dates: start: 20091105, end: 20091105
  7. PREDNISOLONE [Concomitant]
     Dates: start: 20091205, end: 20091207

REACTIONS (1)
  - STATUS ASTHMATICUS [None]
